FAERS Safety Report 17702586 (Version 7)
Quarter: 2020Q4

REPORT INFORMATION
  Report Type: Spontaneous
  Country: IT (occurrence: IT)
  Receive Date: 20200424
  Receipt Date: 20201020
  Transmission Date: 20210113
  Serious: Yes (Disabling, Other)
  Sender: FDA-Public Use
  Company Number: IT-009507513-1710ITA013216

PATIENT
  Age: 18 Year
  Sex: Male
  Weight: 82 kg

DRUGS (1)
  1. PROPECIA [Suspect]
     Active Substance: FINASTERIDE
     Indication: ANDROGENETIC ALOPECIA
     Dosage: 1 MILLIGRAM, QD (1 MG/DAY)
     Route: 048
     Dates: start: 201209, end: 201402

REACTIONS (13)
  - Drug dependence [Unknown]
  - Paraesthesia [Unknown]
  - Dysaesthesia [Unknown]
  - Electrophoresis protein abnormal [Unknown]
  - Presyncope [Unknown]
  - Hypogonadism [Unknown]
  - Post 5-alpha-reductase inhibitor syndrome [Not Recovered/Not Resolved]
  - Protein total increased [Unknown]
  - Gastric disorder [Unknown]
  - Decreased appetite [Unknown]
  - Gastritis [Unknown]
  - Abdominal pain upper [Unknown]
  - Vitamin D decreased [Unknown]

NARRATIVE: CASE EVENT DATE: 201410
